FAERS Safety Report 5633562-7 (Version None)
Quarter: 2008Q1

REPORT INFORMATION
  Report Type: 
  Country: None (occurrence: None)
  Receive Date: 20080221
  Receipt Date: 20080207
  Transmission Date: 20080703
  Serious: Yes (Hospitalization, Other)
  Sender: FDA-Public Use
  Company Number: PHBS2008TR01951

PATIENT
  Age: 12 Year
  Sex: Female

DRUGS (5)
  1. SIROLIMUS [Concomitant]
  2. LEFLUNAMIDE [Concomitant]
  3. MYCOPHENOLATE MOFETIL [Concomitant]
     Indication: RENAL TRANSPLANT
     Route: 065
  4. PREDNISOLONE [Concomitant]
     Indication: RENAL TRANSPLANT
     Route: 065
  5. CYCLOSPORINE [Suspect]
     Indication: RENAL TRANSPLANT
     Route: 065

REACTIONS (10)
  - BK VIRUS INFECTION [None]
  - BLOOD CREATININE INCREASED [None]
  - COMPLICATIONS OF TRANSPLANTED KIDNEY [None]
  - DYSPNOEA [None]
  - KIDNEY TRANSPLANT REJECTION [None]
  - PERICARDIAL EFFUSION [None]
  - POLYOMAVIRUS-ASSOCIATED NEPHROPATHY [None]
  - PYREXIA [None]
  - RENAL IMPAIRMENT [None]
  - RENAL TRANSPLANT [None]
